FAERS Safety Report 23910906 (Version 1)
Quarter: 2024Q2

REPORT INFORMATION
  Report Type: Spontaneous
  Country: US (occurrence: US)
  Receive Date: 20240528
  Receipt Date: 20240528
  Transmission Date: 20240716
  Serious: No
  Sender: FDA-Public Use
  Company Number: US-AVADEL CNS PHARMACEUTICALS, LLC-2024AVA00496

PATIENT
  Sex: Female

DRUGS (21)
  1. LUMRYZ [Suspect]
     Active Substance: SODIUM OXYBATE
     Indication: Narcolepsy
     Dosage: 4.5 G, NIGHTLY
     Dates: start: 202403, end: 20240312
  2. LUMRYZ [Suspect]
     Active Substance: SODIUM OXYBATE
     Dosage: 4.5 G, ONCE NIGHTLY
     Dates: start: 2024
  3. LUMRYZ [Suspect]
     Active Substance: SODIUM OXYBATE
     Indication: Narcolepsy
     Dosage: 6 G, 1X/DAY, NIGHTLY
     Dates: start: 20240312, end: 2024
  4. UNSPECIFIED ADHD MEDICATION [Concomitant]
     Dosage: UNK
  5. METHOCARBAMOL [Concomitant]
     Active Substance: METHOCARBAMOL
     Dosage: 750 MG, TWICE DAILY
  6. HYDROXYZINE [Concomitant]
     Active Substance: HYDROXYZINE HYDROCHLORIDE
     Dosage: 50 MG, TWICE DAILY
  7. ABILIFY [Concomitant]
     Active Substance: ARIPIPRAZOLE
     Dosage: 2 MG, EVERY MORNING
  8. CYMBALTA [Concomitant]
     Active Substance: DULOXETINE HYDROCHLORIDE
     Dosage: UNK
  9. AZSTARYS [Concomitant]
     Active Substance: DEXMETHYLPHENIDATE HYDROCHLORIDE\SERDEXMETHYLPHENIDATE CHLORIDE
     Dosage: 39.2/7.8 MG
  10. FUROSEMIDE [Concomitant]
     Active Substance: FUROSEMIDE
     Dosage: 20 MG, DAILY
  11. METFORMIN [Concomitant]
     Active Substance: METFORMIN HYDROCHLORIDE
     Dosage: 500 MG, TWICE DAILY
  12. MINOXIDIL [Concomitant]
     Active Substance: MINOXIDIL
     Dosage: 2.5 MG
  13. FLECAINIDE [Concomitant]
     Active Substance: FLECAINIDE
     Dosage: 150 MG, TWICE DAILY
  14. ASPIRIN [Concomitant]
     Active Substance: ASPIRIN
     Dosage: 81 MG, DAILY
  15. SIMVASTATIN [Concomitant]
     Active Substance: SIMVASTATIN
     Dosage: 20 MG, DAILY
  16. NAPROXEN [Concomitant]
     Active Substance: NAPROXEN
     Dosage: 500 MG, TWICE DAILY
  17. FLUTICASONE [Concomitant]
     Active Substance: FLUTICASONE
     Dosage: UNK, AS NEEDED
  18. NYSTATIN [Concomitant]
     Active Substance: NYSTATIN
     Dosage: UNK, AS NEEDED
  19. EMGALITY [Concomitant]
     Active Substance: GALCANEZUMAB-GNLM
     Dosage: 120 MG, ONCE MONTHLY
  20. ALBUTEROL [Concomitant]
     Active Substance: ALBUTEROL
     Dosage: UNK, AS NEEDED
  21. MODAFINIL [Concomitant]
     Active Substance: MODAFINIL
     Dosage: 100 MG, EVERY MORNING

REACTIONS (14)
  - Insomnia [Not Recovered/Not Resolved]
  - Middle insomnia [Not Recovered/Not Resolved]
  - Suffocation feeling [Not Recovered/Not Resolved]
  - Fatigue [Not Recovered/Not Resolved]
  - Loss of personal independence in daily activities [Not Recovered/Not Resolved]
  - Chest discomfort [Unknown]
  - Screaming [Unknown]
  - Dyspnoea [Unknown]
  - Nightmare [Unknown]
  - Restlessness [Not Recovered/Not Resolved]
  - Poor quality sleep [Not Recovered/Not Resolved]
  - Somnolence [Recovering/Resolving]
  - Headache [Unknown]
  - Panic attack [Not Recovered/Not Resolved]

NARRATIVE: CASE EVENT DATE: 20240101
